FAERS Safety Report 10568038 (Version 1)
Quarter: 2014Q4

REPORT INFORMATION
  Report Type: Spontaneous
  Country: US (occurrence: None)
  Receive Date: 20141105
  Receipt Date: 20141105
  Transmission Date: 20150529
  Serious: Yes (Hospitalization)
  Sender: FDA-Public Use
  Company Number: None

PATIENT
  Age: 67 Year
  Sex: Male
  Weight: 109 kg

DRUGS (1)
  1. DAPTOMYCIN. [Suspect]
     Active Substance: DAPTOMYCIN
     Indication: ARTHRITIS INFECTIVE
     Route: 042
     Dates: start: 20141006, end: 20141028

REACTIONS (3)
  - Eosinophilic pneumonia [None]
  - Respiratory failure [None]
  - Hypoxia [None]

NARRATIVE: CASE EVENT DATE: 20141028
